FAERS Safety Report 9925247 (Version 1)
Quarter: 2014Q1

REPORT INFORMATION
  Report Type: Spontaneous
  Country: US (occurrence: US)
  Receive Date: 20140226
  Receipt Date: 20140226
  Transmission Date: 20141002
  Serious: Yes (Other)
  Sender: FDA-Public Use
  Company Number: US-SA-2014SA023170

PATIENT
  Age: 65 Year
  Sex: Male

DRUGS (2)
  1. LANTUS [Suspect]
     Indication: TYPE 2 DIABETES MELLITUS
     Dosage: DOSE:40 UNIT(S)
     Route: 051
     Dates: start: 2013
  2. NOVOLOG [Concomitant]
     Dosage: FREQUENCY 10 UNITS/MEALS DOSE:10 UNIT(S)
     Dates: start: 2013

REACTIONS (2)
  - Coronary artery disease [Unknown]
  - Lung disorder [Unknown]
